FAERS Safety Report 13825813 (Version 1)
Quarter: 2017Q3

REPORT INFORMATION
  Report Type: Report from Study
  Country: US (occurrence: US)
  Receive Date: 20170802
  Receipt Date: 20170802
  Transmission Date: 20171127
  Serious: No
  Sender: FDA-Public Use
  Company Number: US-AMGEN-USASL2017114879

PATIENT
  Sex: Female

DRUGS (1)
  1. ENBREL [Suspect]
     Active Substance: ETANERCEPT
     Indication: PRODUCT USED FOR UNKNOWN INDICATION
     Dosage: 50 MG, QWK
     Route: 065

REACTIONS (7)
  - Pain of skin [Unknown]
  - Blood viscosity decreased [Unknown]
  - Alopecia [Unknown]
  - Blood blister [Unknown]
  - Ulcer [Unknown]
  - Skin warm [Unknown]
  - Urticaria [Unknown]
